FAERS Safety Report 13490052 (Version 4)
Quarter: 2017Q2

REPORT INFORMATION
  Report Type: Spontaneous
  Country: JP (occurrence: JP)
  Receive Date: 20170427
  Receipt Date: 20170616
  Transmission Date: 20170830
  Serious: Yes (Death, Life-Threatening)
  Sender: FDA-Public Use
  Company Number: JP-MALLINCKRODT-T201701788

PATIENT
  Age: 71 Year
  Sex: Female
  Weight: 27 kg

DRUGS (16)
  1. PURSENNID [Concomitant]
     Active Substance: SENNOSIDES A AND B
  2. METHADONE [Suspect]
     Active Substance: METHADONE HYDROCHLORIDE
     Dosage: 5 MG, 15 MG DAILY DOSE
     Route: 048
     Dates: start: 20170417, end: 20170420
  3. FENTOS [Concomitant]
     Active Substance: FENTANYL
  4. LANSOPRAZOLE. [Concomitant]
     Active Substance: LANSOPRAZOLE
     Dosage: 30 MG
     Route: 048
     Dates: start: 20170406, end: 20170415
  5. DECADRON [Concomitant]
     Active Substance: DEXAMETHASONE
     Dosage: 4 MG
     Route: 048
     Dates: start: 20170406, end: 20170415
  6. PRAMIEL [Concomitant]
     Dosage: 10 MG
     Route: 048
     Dates: start: 20170413, end: 20170415
  7. CELECOX [Concomitant]
     Active Substance: CELECOXIB
     Indication: PAIN
     Dosage: 300 MG
     Route: 048
     Dates: end: 20170415
  8. TEPRENONE [Concomitant]
     Active Substance: TEPRENONE
  9. PRIMPERAN [Concomitant]
     Active Substance: METOCLOPRAMIDE HYDROCHLORIDE
  10. DENOTAS [Concomitant]
     Active Substance: CALCIUM CARBONATE\CHOLECALCIFEROL\MAGNESIUM CARBONATE
     Dosage: 2 DF
     Route: 048
     Dates: start: 20170406, end: 20170415
  11. METHADONE [Suspect]
     Active Substance: METHADONE HYDROCHLORIDE
     Indication: CANCER PAIN
     Dosage: 10 MG, 30 MG DAILY DOSE
     Route: 048
     Dates: start: 20170414, end: 20170415
  12. LYRICA [Concomitant]
     Active Substance: PREGABALIN
     Indication: PAIN
     Dosage: 150 MG
     Route: 048
     Dates: end: 20170415
  13. MAGMITT [Concomitant]
     Active Substance: MAGNESIUM OXIDE
     Dosage: 1 G
     Route: 048
     Dates: end: 20170415
  14. SENNOSIDE [Concomitant]
     Active Substance: SENNOSIDES
     Dosage: 12 MG
     Route: 048
     Dates: start: 20170413, end: 20170415
  15. FENTANYL. [Concomitant]
     Active Substance: FENTANYL
     Dosage: 0.3 MG
     Dates: start: 20170416
  16. OXINORM [Concomitant]
     Active Substance: OXYCODONE HYDROCHLORIDE
     Dosage: 2.5 MG, PRN
     Dates: start: 20170416

REACTIONS (3)
  - Lung neoplasm malignant [Fatal]
  - Coma [Recovered/Resolved]
  - Altered state of consciousness [Not Recovered/Not Resolved]

NARRATIVE: CASE EVENT DATE: 20170415
